FAERS Safety Report 6517352-9 (Version None)
Quarter: 2009Q4

REPORT INFORMATION
  Report Type: 
  Country: None (occurrence: None)
  Receive Date: 20091218
  Receipt Date: 20091210
  Transmission Date: 20100525
  Serious: Yes (Hospitalization)
  Sender: FDA-Public Use
  Company Number: 2009AC000509

PATIENT
  Sex: Female

DRUGS (1)
  1. DIGOXIN [Suspect]
     Dosage: 250 MCG; PO
     Route: 048
     Dates: start: 20080502

REACTIONS (7)
  - ASTHENIA [None]
  - BRADYCARDIA [None]
  - DECREASED APPETITE [None]
  - ECONOMIC PROBLEM [None]
  - FATIGUE [None]
  - HERPES ZOSTER [None]
  - INJURY [None]
